FAERS Safety Report 5425387-2 (Version None)
Quarter: 2007Q3

REPORT INFORMATION
  Report Type: 
  Country: None (occurrence: None)
  Receive Date: 20070824
  Receipt Date: 20070824
  Transmission Date: 20080115
  Serious: Yes (Hospitalization)
  Sender: FDA-Public Use
  Company Number: DE-ROXANE LABORATORIES, INC-2007-DE-04941GD

PATIENT
  Age: 77 Year
  Sex: Female

DRUGS (11)
  1. METAMIZOLE [Suspect]
  2. ASPIRIN [Suspect]
  3. LACTULOSE [Suspect]
  4. BARBITURATE [Suspect]
  5. DOXEPIN HCL [Suspect]
  6. ENALAPRIL [Suspect]
  7. FLUNITRAZEPAM [Suspect]
  8. NIFEDIPINE [Suspect]
  9. OMEPRAZOLE [Suspect]
  10. VALERIAN PREPARATION [Suspect]
  11. VERAPAMIL [Suspect]

REACTIONS (4)
  - CONFUSIONAL STATE [None]
  - DRUG TOXICITY [None]
  - REFLEXES ABNORMAL [None]
  - SOMNOLENCE [None]
